FAERS Safety Report 7176379-7 (Version None)
Quarter: 2010Q4

REPORT INFORMATION
  Report Type: 
  Country: None (occurrence: None)
  Receive Date: 20101215
  Receipt Date: 20101215
  Transmission Date: 20110411
  Serious: No
  Sender: FDA-Public Use
  Company Number: None

PATIENT
  Age: 60 Year
  Sex: Male
  Weight: 93.2 kg

DRUGS (1)
  1. TAMSULOSIN HCL [Suspect]
     Indication: PROSTATISM
     Dosage: .4MG ONCFE PER DAY ORAL
     Route: 048
     Dates: start: 20100301, end: 20101101

REACTIONS (5)
  - DISEASE RECURRENCE [None]
  - ERECTILE DYSFUNCTION [None]
  - INCONTINENCE [None]
  - POLLAKIURIA [None]
  - PRODUCT SUBSTITUTION ISSUE [None]
